FAERS Safety Report 11273094 (Version 1)
Quarter: 2015Q3

REPORT INFORMATION
  Report Type: Spontaneous
  Country: JP (occurrence: JP)
  Receive Date: 20150715
  Receipt Date: 20150715
  Transmission Date: 20151125
  Serious: Yes (Other)
  Sender: FDA-Public Use
  Company Number: JP-PFIZER INC-2015185186

PATIENT
  Age: 60 Year
  Sex: Male
  Weight: 50 kg

DRUGS (2)
  1. TARCEVA [Concomitant]
     Active Substance: ERLOTINIB HYDROCHLORIDE
     Dosage: UNK
     Route: 065
     Dates: start: 20150404
  2. XALKORI [Suspect]
     Active Substance: CRIZOTINIB
     Indication: LUNG ADENOCARCINOMA
     Dosage: 400 MG, 2X/DAY
     Route: 048
     Dates: start: 20150422, end: 201505

REACTIONS (4)
  - Pneumonia aspiration [Recovered/Resolved]
  - Hepatic function abnormal [Not Recovered/Not Resolved]
  - Nausea [Recovering/Resolving]
  - Vomiting [Recovering/Resolving]

NARRATIVE: CASE EVENT DATE: 201504
